FAERS Safety Report 4496365-5 (Version None)
Quarter: 2004Q4

REPORT INFORMATION
  Report Type: 
  Country: None (occurrence: None)
  Receive Date: 20041108
  Receipt Date: 20041108
  Transmission Date: 20050328
  Serious: Yes (Life-Threatening, Hospitalization, Disabling)
  Sender: FDA-Public Use
  Company Number: None

PATIENT
  Age: 39 Year
  Sex: Female
  Weight: 111.1313 kg

DRUGS (7)
  1. VIOXX [Suspect]
     Indication: PAIN
     Dosage: 25MG ONCE DAILY ORAL
     Route: 048
     Dates: start: 20021001, end: 20041015
  2. DIAMOX [Concomitant]
  3. KLOR COM [Concomitant]
  4. PROZAC [Concomitant]
  5. CLONIDINE [Concomitant]
  6. LISINOPRIL [Concomitant]
  7. BLOOD THINNERS [Concomitant]

REACTIONS (3)
  - DEEP VEIN THROMBOSIS [None]
  - GASTROENTERITIS VIRAL [None]
  - OEDEMA PERIPHERAL [None]
